FAERS Safety Report 20417141 (Version 2)
Quarter: 2022Q1

REPORT INFORMATION
  Report Type: Spontaneous
  Country: US (occurrence: US)
  Receive Date: 20220202
  Receipt Date: 20220209
  Transmission Date: 20220423
  Serious: Yes (Other)
  Sender: FDA-Public Use
  Company Number: US-APOTEX-2022AP002583

PATIENT
  Sex: Female

DRUGS (2)
  1. FLUTICASONE [Suspect]
     Active Substance: FLUTICASONE
     Indication: Nasopharyngitis
     Dosage: 4 DOAGE FORM, QD (2 SPRAYS EACH NOSTRIL DAILY) (COMPLAINT MATERIAL-46612, PACK SIZE-15 ML)
     Route: 045
  2. LORATADINE [Concomitant]
     Active Substance: LORATADINE
     Indication: Hypersensitivity
     Dosage: 1 DOSAGE FORM, QD
     Route: 065

REACTIONS (6)
  - Haemorrhage [Recovered/Resolved]
  - Cheilitis [Recovered/Resolved]
  - Tongue fungal infection [Recovered/Resolved]
  - Stomatitis [Recovered/Resolved]
  - Epistaxis [Recovered/Resolved]
  - Dysphonia [Recovered/Resolved]
